FAERS Safety Report 8303074-0 (Version None)
Quarter: 2012Q2

REPORT INFORMATION
  Report Type: 
  Country: None (occurrence: None)
  Receive Date: 20120422
  Receipt Date: 20120411
  Transmission Date: 20120825
  Serious: Yes (Hospitalization)
  Sender: FDA-Public Use
  Company Number: US-BRISTOL-MYERS SQUIBB COMPANY-16514556

PATIENT
  Age: 5 Decade
  Sex: Male

DRUGS (2)
  1. CLOZARIL [Suspect]
     Indication: SCHIZOPHRENIA
  2. ABILIFY [Suspect]
     Indication: SCHIZOPHRENIA

REACTIONS (2)
  - BALANCE DISORDER [None]
  - SCHIZOPHRENIA [None]
